FAERS Safety Report 17736277 (Version 4)
Quarter: 2020Q2

REPORT INFORMATION
  Report Type: Spontaneous
  Country: US (occurrence: US)
  Receive Date: 20200501
  Receipt Date: 20200617
  Transmission Date: 20200714
  Serious: Yes (Hospitalization)
  Sender: FDA-Public Use
  Company Number: US-JNJFOC-20200434847

PATIENT
  Age: 71 Year
  Sex: Female
  Weight: 108.96 kg

DRUGS (10)
  1. TIOTROPIUM BROMIDE [Concomitant]
     Active Substance: TIOTROPIUM BROMIDE
     Indication: ASTHMA
     Dosage: 2/ -/ 1.25MCG/  ONCE DAILY IN THE EVENING
     Route: 048
  2. VITAMIN B12 [Concomitant]
     Active Substance: CYANOCOBALAMIN
  3. STELARA [Suspect]
     Active Substance: USTEKINUMAB
     Route: 058
  4. BENADRYL [Suspect]
     Active Substance: DIPHENHYDRAMINE HYDROCHLORIDE
     Indication: PRURITUS
     Dosage: AS NEEDED
     Route: 048
  5. PEPCID AC [Suspect]
     Active Substance: FAMOTIDINE
     Indication: PRURITUS
     Dosage: ONE HALF HOUR BEFORE INJECTION
     Route: 065
  6. ALBUTEROL                          /00139501/ [Concomitant]
     Active Substance: ALBUTEROL
     Indication: ASTHMA
     Dosage: AS NEEDED
     Route: 048
  7. STELARA [Suspect]
     Active Substance: USTEKINUMAB
     Indication: CROHN^S DISEASE
     Route: 042
     Dates: start: 201902
  8. FERROUS GLUCONATE [Concomitant]
     Active Substance: FERROUS GLUCONATE
     Indication: BLOOD IRON DECREASED
     Dosage: 2 TABLETS
     Route: 048
  9. BREO ELLIPTA [Concomitant]
     Active Substance: FLUTICASONE FUROATE\VILANTEROL TRIFENATATE
     Indication: ASTHMA
     Dosage: 200/25 ONCE IN THE MORNING/
     Route: 048
  10. FEXOFENADINE [Concomitant]
     Active Substance: FEXOFENADINE HYDROCHLORIDE
     Indication: PREMEDICATION
     Dosage: 45 MIN TO 1 HOUR BEFORE USTEKINUMAB INJECTION
     Route: 065

REACTIONS (8)
  - Urinary tract infection [Recovered/Resolved]
  - Product use in unapproved indication [Unknown]
  - Blood potassium decreased [Recovered/Resolved]
  - Pruritus [Unknown]
  - Off label use [Unknown]
  - Intestinal obstruction [Recovered/Resolved]
  - Liquid product physical issue [Unknown]
  - Wrong technique in product usage process [Unknown]

NARRATIVE: CASE EVENT DATE: 202001
